FAERS Safety Report 6998223-0 (Version None)
Quarter: 2010Q3

REPORT INFORMATION
  Report Type: 
  Country: None (occurrence: None)
  Receive Date: 20100920
  Receipt Date: 20100517
  Transmission Date: 20110219
  Serious: No
  Sender: FDA-Public Use
  Company Number: US-ASTRAZENECA-2010SE27510

PATIENT
  Sex: Female

DRUGS (2)
  1. SEROQUEL [Suspect]
     Dosage: T QAM AND QHS
     Route: 048
     Dates: start: 20040518
  2. EFFEXOR XR [Concomitant]
     Dates: start: 20040518

REACTIONS (1)
  - RASH ERYTHEMATOUS [None]
